FAERS Safety Report 8839897 (Version 1)
Quarter: 2012Q4

REPORT INFORMATION
  Report Type: Spontaneous
  Country: CA (occurrence: None)
  Receive Date: 20121011
  Receipt Date: 20121011
  Transmission Date: 20130627
  Serious: Yes (Life-Threatening)
  Sender: FDA-Public Use
  Company Number: 1440676

PATIENT
  Age: 53 Year
  Sex: Male
  Weight: 64 kg

DRUGS (11)
  1. FENTANYL CITRATE [Suspect]
     Dosage: 200 mcg, UNKNOWN, Intravenous (not otherwise specified)
     Route: 042
  2. LIDOCAINE HYDROCHLORIDE [Suspect]
     Dosage: 2 mg/kg  UNKNOWN, Intravenous drip
     Route: 041
  3. HYDROMORPHONE [Suspect]
     Dosage: 1 mg, UNKNOWN, Intravenous (Not otherwise specified)
     Route: 042
  4. KETAMINE [Suspect]
     Dosage: 20 mg, UNKNOWN, Intravenous bolus
     Route: 040
  5. KETAMINE [Suspect]
     Dosage: 0.1 mg/kg/hr Intravenous drip
     Route: 041
  6. DESFLURANE [Suspect]
     Dosage: Not Reported,  UNKNOWN, Respiratory
     Route: 055
  7. METOPROLOL TARTRATE [Suspect]
     Dosage: 2 mg,  UNKNOWN, Intravenous (not otherwise specified)
     Route: 042
  8. PROPOFOL [Concomitant]
  9. ROCURONIUM [Concomitant]
  10. PHENYLEPHRINE [Concomitant]
  11. RED BLOOD CELLS [Concomitant]

REACTIONS (5)
  - Cardiac arrest [None]
  - Drug interaction [None]
  - Intestinal perforation [None]
  - Electrocardiogram ST segment elevation [None]
  - Ventricular hypokinesia [None]
